FAERS Safety Report 5013636-4 (Version None)
Quarter: 2006Q2

REPORT INFORMATION
  Report Type: 
  Country: None (occurrence: None)
  Receive Date: 20060530
  Receipt Date: 20060512
  Transmission Date: 20061013
  Serious: Yes (Other)
  Sender: FDA-Public Use
  Company Number: JP-JPN-A200601538

PATIENT
  Age: 16 Year
  Sex: Female

DRUGS (1)
  1. FLUTICASONE PROPIONATE [Suspect]
     Dosage: 100MCG TWICE PER DAY
     Route: 045
     Dates: start: 20060426

REACTIONS (4)
  - DIZZINESS [None]
  - PALLOR [None]
  - PHARMACEUTICAL PRODUCT COMPLAINT [None]
  - SHOCK [None]
